FAERS Safety Report 6620653-7 (Version None)
Quarter: 2010Q1

REPORT INFORMATION
  Report Type: 
  Country: None (occurrence: None)
  Receive Date: 20100309
  Receipt Date: 20100224
  Transmission Date: 20100710
  Serious: Yes (Other)
  Sender: FDA-Public Use
  Company Number: US-PFIZER INC-2010025262

PATIENT
  Sex: Female
  Weight: 43 kg

DRUGS (9)
  1. CHANTIX [Suspect]
     Indication: SUICIDAL IDEATION
     Dosage: 0.5 MG, 1X/DAY
     Route: 048
     Dates: start: 20100220, end: 20100224
  2. CHANTIX [Suspect]
     Indication: CONVULSION
  3. CHANTIX [Suspect]
     Indication: MUSCLE SPASMS
  4. DILANTIN [Suspect]
     Indication: CONVULSION
     Dates: start: 20100223
  5. PROMETHAZINE HYDROCHLORIDE [Concomitant]
     Dosage: UNK
  6. TRAZODONE HYDROCHLORIDE [Concomitant]
     Dosage: UNK
  7. DIAZEPAM [Concomitant]
     Dosage: UNK
  8. VITAMIN B COMPLEX CAP [Concomitant]
     Dosage: UNK
  9. BACLOFEN [Concomitant]
     Dosage: UNK

REACTIONS (5)
  - BEDRIDDEN [None]
  - BLOOD POTASSIUM DECREASED [None]
  - CONVULSION [None]
  - DEPRESSION [None]
  - SUICIDAL IDEATION [None]
